FAERS Safety Report 7806531-6 (Version None)
Quarter: 2011Q4

REPORT INFORMATION
  Report Type: 
  Country: None (occurrence: None)
  Receive Date: 20111011
  Receipt Date: 20110926
  Transmission Date: 20120403
  Serious: Yes (Other)
  Sender: FDA-Public Use
  Company Number: GB-TYCO HEALTHCARE/MALLINCKRODT-T201101627

PATIENT
  Age: 67 Year
  Sex: Female
  Weight: 55 kg

DRUGS (6)
  1. ADCAL-D3 [Concomitant]
     Dosage: UNK
  2. PHENYTOIN [Concomitant]
     Dosage: 200 MG 2/1 DAYS
     Route: 048
  3. ENOXAPARIN SODIUM [Concomitant]
  4. AMOXICILLIN [Suspect]
     Indication: LOWER RESPIRATORY TRACT INFECTION
     Dosage: 500 MG 3/1 DAYS
     Route: 048
     Dates: start: 20110808
  5. OPTIRAY 160 [Suspect]
     Indication: SCAN WITH CONTRAST
     Dosage: 100 ML, SINGLE
     Route: 042
     Dates: start: 20110809, end: 20110809
  6. ACETAMINOPHEN [Concomitant]

REACTIONS (1)
  - CONVULSION [None]
